FAERS Safety Report 5271127-X (Version None)
Quarter: 2007Q1

REPORT INFORMATION
  Report Type: 
  Country: None (occurrence: None)
  Receive Date: 20070321
  Receipt Date: 20070309
  Transmission Date: 20070707
  Serious: Yes (Hospitalization)
  Sender: FDA-Public Use
  Company Number: FR-BAYER-200710188BFR

PATIENT
  Age: 22 Year
  Sex: Male

DRUGS (2)
  1. MOXIFLOXACIN HYDROCHLORIDE [Suspect]
     Indication: INFLUENZA
     Route: 048
  2. ADVIL [Concomitant]
     Indication: INFLUENZA

REACTIONS (3)
  - APHTHOUS STOMATITIS [None]
  - CHAPPED LIPS [None]
  - ORAL SOFT TISSUE DISORDER [None]
